FAERS Safety Report 5119851-3 (Version None)
Quarter: 2006Q3

REPORT INFORMATION
  Report Type: 
  Country: None (occurrence: None)
  Receive Date: 20060927
  Receipt Date: 20060919
  Transmission Date: 20061208
  Serious: Yes (Hospitalization, Other)
  Sender: FDA-Public Use
  Company Number: HQWYE631915DEC03

PATIENT
  Age: 54 Year
  Sex: Female
  Weight: 66.51 kg

DRUGS (4)
  1. MYLOTARG [Suspect]
     Indication: ACUTE MYELOID LEUKAEMIA
     Dosage: SEE IMAGE
     Route: 042
     Dates: start: 20031017, end: 20031027
  2. MYLOTARG [Suspect]
     Indication: ACUTE MYELOID LEUKAEMIA
     Dosage: SEE IMAGE
     Route: 042
     Dates: start: 20031031, end: 20031031
  3. ASPIRIN [Concomitant]
  4. AVALOX (MOIFLOXACIN) [Concomitant]

REACTIONS (7)
  - ALANINE AMINOTRANSFERASE INCREASED [None]
  - ASPARTATE AMINOTRANSFERASE INCREASED [None]
  - BLOOD BILIRUBIN INCREASED [None]
  - FEBRILE NEUTROPENIA [None]
  - LIVER FUNCTION TEST ABNORMAL [None]
  - STAPHYLOCOCCAL INFECTION [None]
  - WEIGHT INCREASED [None]
